FAERS Safety Report 23468545 (Version 1)
Quarter: 2024Q1

REPORT INFORMATION
  Report Type: Spontaneous
  Country: US (occurrence: None)
  Receive Date: 20240201
  Receipt Date: 20240201
  Transmission Date: 20240410
  Serious: Yes (Hospitalization)
  Sender: FDA-Public Use
  Company Number: None

PATIENT
  Age: 82 Year
  Sex: Male
  Weight: 127 kg

DRUGS (6)
  1. OLANZAPINE [Suspect]
     Active Substance: OLANZAPINE
     Indication: Schizophrenia
     Dosage: 10 MG TWICE A DAY ORAL?
     Route: 048
     Dates: start: 20240112, end: 20240115
  2. OLANZAPINE [Suspect]
     Active Substance: OLANZAPINE
     Indication: Schizophrenia
     Dosage: 10 MG TWICE A DAY ORAL?
     Route: 048
     Dates: start: 20240112, end: 20240115
  3. QUETIAPINE [Suspect]
     Active Substance: QUETIAPINE
  4. LORAZEPAM [Suspect]
     Active Substance: LORAZEPAM
  5. HYDROXYZINE [Suspect]
     Active Substance: HYDROXYZINE HYDROCHLORIDE
  6. OXCARBAZEPINE [Suspect]
     Active Substance: OXCARBAZEPINE

REACTIONS (10)
  - Hypotension [None]
  - Agitation [None]
  - Bradycardia [None]
  - Psychotic disorder [None]
  - Electrocardiogram QT prolonged [None]
  - Blood creatinine increased [None]
  - Delirium [None]
  - Hemiparesis [None]
  - Mental status changes [None]
  - Hypothermia [None]

NARRATIVE: CASE EVENT DATE: 20240126
